FAERS Safety Report 12933767 (Version 1)
Quarter: 2016Q4

REPORT INFORMATION
  Report Type: Spontaneous
  Country: ES (occurrence: ES)
  Receive Date: 20161111
  Receipt Date: 20161111
  Transmission Date: 20170207
  Serious: Yes (Other)
  Sender: FDA-Public Use
  Company Number: ES-CANTON LABORATORIES, LLC-1059458

PATIENT
  Age: 72 Year
  Sex: Female

DRUGS (1)
  1. NAPROSYN [Suspect]
     Active Substance: NAPROXEN
     Indication: MIGRAINE
     Dates: start: 20161015

REACTIONS (1)
  - Palatal oedema [Unknown]

NARRATIVE: CASE EVENT DATE: 20161016
